FAERS Safety Report 25986983 (Version 1)
Quarter: 2025Q4

REPORT INFORMATION
  Report Type: Spontaneous
  Country: EU (occurrence: EU)
  Receive Date: 20251103
  Receipt Date: 20251103
  Transmission Date: 20260117
  Serious: Yes (Other)
  Sender: VELOXIS PHARMACEUTICALS
  Company Number: EU-CHIESI-2025CHF07511

PATIENT
  Age: 57 Year
  Sex: Female

DRUGS (10)
  1. TACROLIMUS [Suspect]
     Active Substance: TACROLIMUS
     Indication: Prophylaxis against transplant rejection
     Dosage: 0.06 MILLIGRAM/KILOGRAM, QD
     Route: 065
  2. TACROLIMUS [Suspect]
     Active Substance: TACROLIMUS
     Indication: Adult T-cell lymphoma/leukaemia
  3. RITUXIMAB [Suspect]
     Active Substance: RITUXIMAB
     Indication: Prophylaxis against transplant rejection
     Dosage: 375 MILLIGRAM/SQ. METER, QW
  4. RITUXIMAB [Suspect]
     Active Substance: RITUXIMAB
     Indication: Adult T-cell lymphoma/leukaemia
  5. MYCOPHENOLATE MOFETIL [Suspect]
     Active Substance: MYCOPHENOLATE MOFETIL
     Indication: Prophylaxis against transplant rejection
     Dosage: 10 MILLIGRAM/KILOGRAM, QD
     Route: 065
  6. CYCLOPHOSPHAMIDE [Suspect]
     Active Substance: CYCLOPHOSPHAMIDE
     Indication: Prophylaxis against transplant rejection
     Dosage: 50 MILLIGRAM/KILOGRAM, QD
     Route: 065
  7. BUSULFAN [Suspect]
     Active Substance: BUSULFAN
     Indication: Prophylaxis against transplant rejection
     Dosage: 3.2 MILLIGRAM/KILOGRAM, QD
  8. IMMUNE GLOBULIN NOS [Suspect]
     Active Substance: IMMUNE GLOBULIN NOS
     Indication: Adult T-cell lymphoma/leukaemia
     Dosage: UNK
  9. MYCOPHENOLATE MOFETIL [Suspect]
     Active Substance: MYCOPHENOLATE MOFETIL
     Indication: Adult T-cell lymphoma/leukaemia
     Dosage: 10 MILLIGRAM/KILOGRAM, QD
     Route: 065
  10. AMINO ACIDS\ELECTROLYTES NOS [Suspect]
     Active Substance: AMINO ACIDS\ELECTROLYTES NOS
     Indication: Adult T-cell lymphoma/leukaemia
     Dosage: UNK
     Route: 065

REACTIONS (4)
  - Myelitis [Unknown]
  - Cytomegalovirus infection reactivation [Recovered/Resolved]
  - Drug effective for unapproved indication [Unknown]
  - Off label use [Unknown]
